FAERS Safety Report 7033540-X (Version None)
Quarter: 2010Q4

REPORT INFORMATION
  Report Type: 
  Country: None (occurrence: None)
  Receive Date: 20101007
  Receipt Date: 20100923
  Transmission Date: 20110411
  Serious: Yes (Other)
  Sender: FDA-Public Use
  Company Number: PHHY2010BR63738

PATIENT
  Sex: Female

DRUGS (2)
  1. DIOVAN [Suspect]
     Indication: HYPERTENSION
     Dosage: 160 MG, QD
     Route: 048
  2. DIOVAN [Suspect]
     Dosage: 320 MG, QD
     Route: 048

REACTIONS (2)
  - BLOOD PRESSURE FLUCTUATION [None]
  - LOWER LIMB FRACTURE [None]
